FAERS Safety Report 14923627 (Version 3)
Quarter: 2019Q2

REPORT INFORMATION
  Report Type: Spontaneous
  Country: US (occurrence: US)
  Receive Date: 20180522
  Receipt Date: 20190522
  Transmission Date: 20190711
  Serious: No
  Sender: FDA-Public Use
  Company Number: US-BEH-2018090791

PATIENT
  Age: 71 Year
  Sex: Female

DRUGS (1)
  1. BERINERT [Suspect]
     Active Substance: HUMAN C1-ESTERASE INHIBITOR
     Indication: HEREDITARY ANGIOEDEMA
     Dosage: 1350 IU, PRN
     Route: 042
     Dates: start: 20120312

REACTIONS (2)
  - Erythema [Unknown]
  - Catheter site rash [Unknown]

NARRATIVE: CASE EVENT DATE: 20180516
